FAERS Safety Report 5986787-5 (Version None)
Quarter: 2008Q4

REPORT INFORMATION
  Report Type: 
  Country: None (occurrence: None)
  Receive Date: 20081209
  Receipt Date: 20080409
  Transmission Date: 20090506
  Serious: No
  Sender: FDA-Public Use
  Company Number: US-AMGEN-KDL273778

PATIENT
  Sex: Male

DRUGS (2)
  1. ENBREL [Suspect]
     Indication: PSORIATIC ARTHROPATHY
     Route: 058
     Dates: start: 20080118
  2. ENBREL [Suspect]
     Indication: PSORIASIS

REACTIONS (4)
  - CHEST DISCOMFORT [None]
  - PRODUCTIVE COUGH [None]
  - PSORIASIS [None]
  - RHINORRHOEA [None]
